FAERS Safety Report 6447476-6 (Version None)
Quarter: 2009Q4

REPORT INFORMATION
  Report Type: 
  Country: None (occurrence: None)
  Receive Date: 20091119
  Receipt Date: 20091109
  Transmission Date: 20100525
  Serious: Yes (Death, Other)
  Sender: FDA-Public Use
  Company Number: JP-ABBOTT-09P-087-0609248-00

PATIENT
  Age: 72 Year
  Sex: Male

DRUGS (12)
  1. LEUPLIN SR FOR INJECTION 11.25 MG [Suspect]
     Indication: PROSTATE CANCER STAGE IV
     Route: 058
     Dates: start: 20080722, end: 20090916
  2. CASODEX [Suspect]
     Indication: PROSTATE CANCER STAGE IV
     Route: 048
     Dates: end: 20081021
  3. PROSTAL [Concomitant]
     Indication: PROSTATE CANCER STAGE IV
     Route: 048
     Dates: start: 20081022, end: 20090106
  4. ESTRAMUSTINE PHOSPHATE SODIUM [Concomitant]
     Indication: PROSTATE CANCER STAGE IV
     Route: 048
     Dates: start: 20090109, end: 20091101
  5. MS CONTIN [Concomitant]
     Indication: CANCER PAIN
     Route: 048
     Dates: start: 20090106, end: 20090206
  6. MS CONTIN [Concomitant]
     Route: 048
     Dates: start: 20090207, end: 20090406
  7. MS CONTIN [Concomitant]
     Route: 048
     Dates: start: 20090407, end: 20090507
  8. OXYCONTIN [Concomitant]
     Indication: CANCER PAIN
     Route: 048
     Dates: start: 20090507, end: 20090511
  9. DUROTEP [Concomitant]
     Indication: CANCER PAIN
     Route: 062
     Dates: start: 20090514, end: 20090526
  10. DUROTEP [Concomitant]
     Route: 062
     Dates: start: 20090527, end: 20090804
  11. DUROTEP [Concomitant]
     Route: 062
     Dates: start: 20090805, end: 20090915
  12. DUROTEP [Concomitant]
     Route: 062
     Dates: start: 20090916, end: 20091102

REACTIONS (4)
  - ALANINE AMINOTRANSFERASE INCREASED [None]
  - ASPARTATE AMINOTRANSFERASE INCREASED [None]
  - CYSTITIS [None]
  - DROWNING [None]
